FAERS Safety Report 15036147 (Version 1)
Quarter: 2018Q2

REPORT INFORMATION
  Report Type: Spontaneous
  Country: FR (occurrence: FR)
  Receive Date: 20180620
  Receipt Date: 20180620
  Transmission Date: 20180711
  Serious: Yes (Other)
  Sender: FDA-Public Use
  Company Number: FR-JNJFOC-20180619567

PATIENT
  Age: 23 Year
  Sex: Male

DRUGS (1)
  1. REMICADE [Suspect]
     Active Substance: INFLIXIMAB
     Indication: UVEITIS
     Route: 042

REACTIONS (3)
  - Behcet^s syndrome [Recovered/Resolved]
  - Off label use [Unknown]
  - Product use in unapproved indication [Unknown]
